FAERS Safety Report 13093198 (Version 3)
Quarter: 2017Q1

REPORT INFORMATION
  Report Type: Report from Study
  Country: CZ (occurrence: CZ)
  Receive Date: 20170106
  Receipt Date: 20170308
  Transmission Date: 20170428
  Serious: Yes (Hospitalization)
  Sender: FDA-Public Use
  Company Number: CZ-JNJFOC-20170102630

PATIENT
  Age: 57 Year
  Sex: Male
  Weight: 81 kg

DRUGS (9)
  1. VIGANTOL [Concomitant]
     Active Substance: CHOLECALCIFEROL
     Dosage: 20 GTT
     Route: 065
  2. PRENESSA [Concomitant]
     Active Substance: PERINDOPRIL
     Indication: HYPERTENSION
     Dosage: 4 MG ? TBL
     Route: 065
  3. ACIDUM FOLICUM [Concomitant]
     Active Substance: FOLIC ACID
     Indication: ANKYLOSING SPONDYLITIS
     Route: 065
     Dates: start: 20160229
  4. HELICID [Concomitant]
     Route: 065
  5. NALTREXONE HCL [Concomitant]
     Active Substance: NALTREXONE HYDROCHLORIDE
     Indication: ANKYLOSING SPONDYLITIS
     Route: 065
     Dates: start: 20160229
  6. METHOTREXATE. [Concomitant]
     Active Substance: METHOTREXATE
     Dosage: TBL. 2-0-1
     Route: 065
  7. CIPRALEX [Concomitant]
     Active Substance: ESCITALOPRAM OXALATE
     Route: 065
  8. SIMPONI [Suspect]
     Active Substance: GOLIMUMAB
     Indication: ANKYLOSING SPONDYLITIS
     Route: 058
     Dates: start: 20160708, end: 20161102
  9. FORTECORTIN [Concomitant]
     Active Substance: DEXAMETHASONE
     Route: 065

REACTIONS (1)
  - Glioblastoma [Not Recovered/Not Resolved]

NARRATIVE: CASE EVENT DATE: 20161105
